FAERS Safety Report 4350321-6 (Version None)
Quarter: 2004Q2

REPORT INFORMATION
  Report Type: 
  Country: None (occurrence: None)
  Receive Date: 20040427
  Receipt Date: 20030603
  Transmission Date: 20050107
  Serious: No
  Sender: FDA-Public Use
  Company Number: 000560

PATIENT
  Sex: Female

DRUGS (4)
  1. ZEVALIN [Suspect]
     Indication: NON-HODGKIN'S LYMPHOMA
     Dosage: SEE IMAGE
     Dates: start: 20030328, end: 20030328
  2. ZEVALIN [Suspect]
     Dosage: SEE IMAGE
     Dates: start: 20030401, end: 20030401
  3. .. [Suspect]
  4. ... [Suspect]

REACTIONS (3)
  - DRUG INEFFECTIVE [None]
  - PAIN [None]
  - PANCYTOPENIA [None]
